FAERS Safety Report 24274065 (Version 1)
Quarter: 2024Q3

REPORT INFORMATION
  Report Type: Spontaneous
  Country: SE (occurrence: SE)
  Receive Date: 20240902
  Receipt Date: 20240902
  Transmission Date: 20241017
  Serious: Yes (Other)
  Sender: TAKEDA
  Company Number: None

PATIENT
  Age: 9 Year
  Sex: Male
  Weight: 33 kg

DRUGS (3)
  1. INTUNIV [Suspect]
     Active Substance: GUANFACINE HYDROCHLORIDE
     Indication: Attention deficit hyperactivity disorder
     Dosage: 1 MILLIGRAM, QD
     Route: 048
     Dates: start: 20240814, end: 20240818
  2. MELATONIN [Concomitant]
     Active Substance: MELATONIN
     Dosage: UNK UNK, QD
     Route: 048
     Dates: start: 20210610
  3. METHYLPHENIDATE [Concomitant]
     Active Substance: METHYLPHENIDATE
     Dosage: 20 MILLIGRAM, QD
     Route: 048
     Dates: start: 20210302

REACTIONS (3)
  - Erythema [Recovering/Resolving]
  - Hot flush [Unknown]
  - Rash [Recovering/Resolving]

NARRATIVE: CASE EVENT DATE: 20240815
